FAERS Safety Report 20160989 (Version 2)
Quarter: 2021Q4

REPORT INFORMATION
  Report Type: Spontaneous
  Country: DE (occurrence: DE)
  Receive Date: 20211208
  Receipt Date: 20211220
  Transmission Date: 20220303
  Serious: Yes (Hospitalization, Other)
  Sender: FDA-Public Use
  Company Number: DE-TEVA-2021-DE-1984902

PATIENT
  Age: 33 Year
  Sex: Male

DRUGS (8)
  1. PAROXETINE [Suspect]
     Active Substance: PAROXETINE
     Indication: Obsessive-compulsive disorder
     Dosage: 30 MILLIGRAM DAILY;
     Route: 065
     Dates: end: 201712
  2. METHYLPHENIDATE [Suspect]
     Active Substance: METHYLPHENIDATE
     Indication: Attention deficit hyperactivity disorder
     Dosage: 10MG
     Route: 065
     Dates: start: 2018
  3. QUETIAPINE [Suspect]
     Active Substance: QUETIAPINE
     Indication: Obsessive-compulsive disorder
     Dosage: 25 MILLIGRAM DAILY;
     Route: 065
     Dates: start: 2018
  4. QUETIAPINE [Suspect]
     Active Substance: QUETIAPINE
     Indication: Attention deficit hyperactivity disorder
  5. SERTRALINE [Concomitant]
     Active Substance: SERTRALINE HYDROCHLORIDE
     Indication: Obsessive-compulsive disorder
     Dosage: 50 MILLIGRAM DAILY;
     Route: 065
     Dates: start: 201712, end: 2018
  6. SERTRALINE [Concomitant]
     Active Substance: SERTRALINE HYDROCHLORIDE
     Indication: Attention deficit hyperactivity disorder
     Dosage: 25 MILLIGRAM DAILY;
     Route: 065
     Dates: start: 2018, end: 2018
  7. SERTRALINE [Concomitant]
     Active Substance: SERTRALINE HYDROCHLORIDE
     Dosage: 50 MILLIGRAM DAILY;
     Route: 065
     Dates: start: 2018, end: 2018
  8. SERTRALINE [Concomitant]
     Active Substance: SERTRALINE HYDROCHLORIDE
     Dosage: 37.5 MILLIGRAM DAILY;
     Route: 065
     Dates: start: 2018, end: 2018

REACTIONS (5)
  - Attention deficit hyperactivity disorder [Recovered/Resolved]
  - Obsessive-compulsive disorder [Recovered/Resolved]
  - Rebound effect [Recovered/Resolved]
  - Intentional product misuse [Unknown]
  - Therapy non-responder [Unknown]

NARRATIVE: CASE EVENT DATE: 20180101
